FAERS Safety Report 23462378 (Version 3)
Quarter: 2024Q1

REPORT INFORMATION
  Report Type: Report from Study
  Country: US (occurrence: US)
  Receive Date: 20240131
  Receipt Date: 20240225
  Transmission Date: 20240409
  Serious: No
  Sender: FDA-Public Use
  Company Number: US-JNJFOC-20240175027

PATIENT
  Age: 35 Year
  Sex: Female
  Weight: 100.79 kg

DRUGS (9)
  1. SPRAVATO [Suspect]
     Active Substance: ESKETAMINE
     Indication: Depression
     Dosage: ^56 MG, 1 TOTAL DOSE^
     Dates: start: 20230620, end: 20230620
  2. SPRAVATO [Suspect]
     Active Substance: ESKETAMINE
     Dosage: ^84 MG, 33 TOTAL DOSES^
     Dates: start: 20230622, end: 20240116
  3. SPRAVATO [Suspect]
     Active Substance: ESKETAMINE
     Dosage: ^84 MG, RECENT ADMINISTERED DOSE^
     Dates: start: 20240123, end: 20240123
  4. PROPRANOLOL [Suspect]
     Active Substance: PROPRANOLOL HYDROCHLORIDE
     Indication: Mood swings
     Dosage: 20 MG, MORNING?20 MG, NIGHT?WEANING DOWN TO STOP COMPLETELY CURRENT AT 20 MG, QAM, PO
     Route: 048
     Dates: start: 20230919
  5. VYVANSE [Suspect]
     Active Substance: LISDEXAMFETAMINE DIMESYLATE
     Indication: Attention deficit hyperactivity disorder
     Dosage: QAM: ONCE A DAY IN THE MORNING
     Route: 048
     Dates: start: 20231031
  6. DEPTIN [Concomitant]
     Indication: Major depression
     Route: 048
     Dates: start: 20231114
  7. PRISTIQ EXTENDED-RELEASE [Concomitant]
     Active Substance: DESVENLAFAXINE SUCCINATE
     Indication: Major depression
     Route: 048
     Dates: start: 20230919
  8. INGREZZA [Concomitant]
     Active Substance: VALBENAZINE
     Indication: Dyskinesia
     Dosage: MANAGED BY OTHER PROVIDER PRIOR TO 14-APR-2023
     Route: 048
  9. TRINTELLIX [Concomitant]
     Active Substance: VORTIOXETINE HYDROBROMIDE
     Indication: Major depression
     Route: 048
     Dates: start: 20240116

REACTIONS (1)
  - Blood pressure increased [Recovered/Resolved]

NARRATIVE: CASE EVENT DATE: 20240123
